FAERS Safety Report 8974193 (Version 4)
Quarter: 2013Q2

REPORT INFORMATION
  Report Type: Spontaneous
  Country: JP (occurrence: None)
  Receive Date: 20121212
  Receipt Date: 20130403
  Transmission Date: 20140414
  Serious: Yes (Hospitalization, Other)
  Sender: FDA-Public Use
  Company Number: ABR_00736_2012

PATIENT
  Age: 26 Year
  Sex: Female
  Weight: 58.2 kg

DRUGS (5)
  1. ERYTHROCIN [Suspect]
     Indication: DIFFUSE PANBRONCHIOLITIS
     Dosage: (DF)
     Dates: start: 2012, end: 201204
  2. KLARICID [Suspect]
     Indication: DIFFUSE PANBRONCHIOLITIS
     Dosage: (DF)
     Dates: start: 2010, end: 2012
  3. CLARITHROMYCIN (CLARITHROMYCIN) [Suspect]
     Indication: DIFFUSE PANBRONCHIOLITIS
     Dosage: (DF)
     Dates: start: 2010, end: 201204
  4. LOXOPROFEN SODIUM [Suspect]
     Indication: PRODUCT USED FOR UNKNOWN INDICATION
     Dosage: (DF)
  5. LOXONIN [Concomitant]

REACTIONS (11)
  - Drug-induced liver injury [None]
  - Pulmonary sarcoidosis [None]
  - Aspartate aminotransferase increased [None]
  - Alanine aminotransferase increased [None]
  - Lymphocyte stimulation test positive [None]
  - Granuloma [None]
  - Necrosis [None]
  - Eczema [None]
  - Sarcoidosis [None]
  - Lymphadenopathy [None]
  - Diffuse panbronchiolitis [None]
